FAERS Safety Report 8225937-7 (Version None)
Quarter: 2012Q1

REPORT INFORMATION
  Report Type: 
  Country: None (occurrence: None)
  Receive Date: 20120321
  Receipt Date: 20120316
  Transmission Date: 20120608
  Serious: Yes (Life-Threatening, Hospitalization)
  Sender: FDA-Public Use
  Company Number: NL-PFIZER INC-2012070450

PATIENT
  Age: 51 Year
  Sex: Female

DRUGS (1)
  1. SUNITINIB MALATE [Suspect]
     Dosage: UNK
     Dates: start: 20120306

REACTIONS (1)
  - ACUTE ABDOMEN [None]
